FAERS Safety Report 5753017-9 (Version None)
Quarter: 2008Q2

REPORT INFORMATION
  Report Type: 
  Country: None (occurrence: None)
  Receive Date: 20080523
  Receipt Date: 20080512
  Transmission Date: 20081010
  Serious: Yes (Other)
  Sender: FDA-Public Use
  Company Number: 1-16142501/MED-08098

PATIENT
  Sex: Male

DRUGS (1)
  1. BACTRIM [Suspect]
     Indication: EAR INFECTION
     Dosage: 6-12MG TMP, 30-60MGSMX, QD, ORAL
     Route: 048

REACTIONS (11)
  - ACUTE LYMPHOCYTIC LEUKAEMIA [None]
  - ANAEMIA [None]
  - ANOREXIA [None]
  - BLOOD FOLATE DECREASED [None]
  - FATIGUE [None]
  - HEPATOMEGALY [None]
  - PALLOR [None]
  - SPLENOMEGALY [None]
  - TACHYCARDIA [None]
  - THROMBOCYTOPENIA [None]
  - VITAMIN B12 DECREASED [None]
